FAERS Safety Report 19396852 (Version 2)
Quarter: 2021Q4

REPORT INFORMATION
  Report Type: Spontaneous
  Country: US (occurrence: US)
  Receive Date: 20210610
  Receipt Date: 20211214
  Transmission Date: 20220303
  Serious: No
  Sender: FDA-Public Use
  Company Number: US-UCBSA-2021018296

PATIENT
  Age: 4 Year
  Sex: Female

DRUGS (2)
  1. NAYZILAM [Suspect]
     Active Substance: MIDAZOLAM
     Indication: Epilepsy
     Dosage: UNK
  2. APTIOM [Concomitant]
     Active Substance: ESLICARBAZEPINE ACETATE
     Indication: Focal dyscognitive seizures
     Dosage: UNK

REACTIONS (5)
  - Off label use [Unknown]
  - Cough [Unknown]
  - Vomiting [Unknown]
  - Sneezing [Unknown]
  - Somnolence [Unknown]
